FAERS Safety Report 20520881 (Version 1)
Quarter: 2022Q1

REPORT INFORMATION
  Report Type: Spontaneous
  Country: US (occurrence: US)
  Receive Date: 20220225
  Receipt Date: 20220225
  Transmission Date: 20220423
  Serious: No
  Sender: FDA-Public Use
  Company Number: US-REDHILL BIOPHARMA-2021RDH00216

PATIENT
  Age: 7 Decade
  Sex: Female

DRUGS (2)
  1. TALICIA [Suspect]
     Active Substance: AMOXICILLIN\OMEPRAZOLE MAGNESIUM\RIFABUTIN
     Indication: Product used for unknown indication
  2. UNSPECIFIED RHEUMATOID ARTHRITIS MEDICATION [Concomitant]

REACTIONS (1)
  - Hypertension [Unknown]
